FAERS Safety Report 7421225-7 (Version None)
Quarter: 2011Q2

REPORT INFORMATION
  Report Type: 
  Country: None (occurrence: None)
  Receive Date: 20110407
  Receipt Date: 20110329
  Transmission Date: 20111010
  Serious: Yes (Other)
  Sender: FDA-Public Use
  Company Number: USA/USA/11/0017825

PATIENT
  Age: 78 Year
  Sex: Female

DRUGS (3)
  1. CETIRIZINE 10 MG (CETIRIZINE HYDOCHLORIDE)10 MG [Suspect]
     Indication: MULTIPLE ALLERGIES
     Dosage: 1 DOSAGE FORMS, 1 D, ORAL
     Route: 048
     Dates: start: 20110324
  2. SYNTHROID [Concomitant]
  3. FISH OIL (FISH OIL) [Concomitant]

REACTIONS (5)
  - FALL [None]
  - DIZZINESS [None]
  - HEAD INJURY [None]
  - LOSS OF CONSCIOUSNESS [None]
  - HAEMORRHAGE [None]
